FAERS Safety Report 4630388-8 (Version None)
Quarter: 2005Q2

REPORT INFORMATION
  Report Type: 
  Country: None (occurrence: None)
  Receive Date: 20050408
  Receipt Date: 20050328
  Transmission Date: 20051028
  Serious: Yes (Hospitalization)
  Sender: FDA-Public Use
  Company Number: US-AMGEN-ICO123233

PATIENT
  Sex: Male

DRUGS (13)
  1. DARBEPOETIN ALFA [Suspect]
     Indication: RENAL FAILURE CHRONIC
     Route: 058
     Dates: start: 20041101
  2. LEVOTHYROXINE SODIUM [Concomitant]
     Route: 048
  3. DILTIAZEM [Concomitant]
     Route: 048
  4. GLYBURIDE [Concomitant]
     Route: 048
  5. ATENOLOL [Concomitant]
     Route: 048
  6. ATORVASTATIN CALCIUM [Concomitant]
     Route: 048
  7. VALSARTAN [Concomitant]
     Route: 048
  8. FERROUS SULFATE TAB [Concomitant]
     Route: 048
  9. ISOSORBIDE [Concomitant]
  10. PLAVIX [Concomitant]
     Route: 048
  11. METHOTREXATE [Concomitant]
     Route: 048
  12. CELEBREX [Concomitant]
     Route: 048
  13. HYOSCYAMINE [Concomitant]
     Route: 048

REACTIONS (4)
  - DEEP VEIN THROMBOSIS [None]
  - EPISTAXIS [None]
  - FALL [None]
  - HAEMOGLOBIN DECREASED [None]
